FAERS Safety Report 4478767-6 (Version None)
Quarter: 2004Q4

REPORT INFORMATION
  Report Type: 
  Country: None (occurrence: None)
  Receive Date: 20040923
  Receipt Date: 20040706
  Transmission Date: 20050328
  Serious: No
  Sender: FDA-Public Use
  Company Number: USA040566502

PATIENT
  Age: 67 Year
  Sex: Female
  Weight: 77 kg

DRUGS (4)
  1. FORTEO [Suspect]
     Indication: INTERVERTEBRAL DISC COMPRESSION
     Dosage: 20 UG/L DAY
     Dates: start: 20040201
  2. FORTEO [Suspect]
     Indication: OSTEOPOROSIS
     Dosage: 20 UG/L DAY
     Dates: start: 20040201
  3. CALCIUM AND VITAMIN D [Concomitant]
  4. ACTONEL [Concomitant]

REACTIONS (5)
  - ARTHRALGIA [None]
  - BALANCE DISORDER [None]
  - CONSTIPATION [None]
  - DIZZINESS [None]
  - NAUSEA [None]
